FAERS Safety Report 6500088-8 (Version None)
Quarter: 2009Q4

REPORT INFORMATION
  Report Type: 
  Country: None (occurrence: None)
  Receive Date: 20091216
  Receipt Date: 20091211
  Transmission Date: 20100525
  Serious: Yes (Hospitalization)
  Sender: FDA-Public Use
  Company Number: DK-WYE-G05124209

PATIENT
  Sex: Female

DRUGS (3)
  1. VENLAFAXINE HYDROCHLORIDE [Suspect]
     Indication: DEPRESSION
     Route: 048
     Dates: start: 20091119, end: 20091127
  2. MIRTAZAPINE [Concomitant]
     Indication: DEPRESSION
     Dosage: UNKNOWN
     Dates: end: 20091119
  3. CIPRALEX [Concomitant]
     Indication: DEPRESSION
     Route: 048

REACTIONS (10)
  - ABDOMINAL PAIN [None]
  - BLOOD POTASSIUM DECREASED [None]
  - DECREASED APPETITE [None]
  - DISORIENTATION [None]
  - DIZZINESS [None]
  - FATIGUE [None]
  - HYPERHIDROSIS [None]
  - PRESYNCOPE [None]
  - SLEEP DISORDER [None]
  - SWOLLEN TONGUE [None]
